FAERS Safety Report 14614136 (Version 1)
Quarter: 2018Q1

REPORT INFORMATION
  Report Type: Spontaneous
  Country: FR (occurrence: FR)
  Receive Date: 20180308
  Receipt Date: 20180308
  Transmission Date: 20180509
  Serious: Yes (Hospitalization)
  Sender: FDA-Public Use
  Company Number: FR-INDIVIOR LIMITED-INDV-109394-2018

PATIENT
  Age: 32 Year
  Sex: Female

DRUGS (5)
  1. CANNABIS [Suspect]
     Active Substance: CANNABIS SATIVA SUBSP. INDICA TOP
     Indication: PRODUCT USED FOR UNKNOWN INDICATION
     Dosage: 6 JOINTS A WEEK
     Route: 055
  2. HEROIN [Suspect]
     Active Substance: DIAMORPHINE
     Indication: PRODUCT USED FOR UNKNOWN INDICATION
     Dosage: 3-4 TIMES A MONTH
     Route: 065
  3. SUBUTEX [Suspect]
     Active Substance: BUPRENORPHINE HYDROCHLORIDE
     Indication: PRODUCT USED FOR UNKNOWN INDICATION
     Dosage: 1MG/ DAY
     Route: 048
  4. NICOTINE. [Suspect]
     Active Substance: NICOTINE
     Indication: PRODUCT USED FOR UNKNOWN INDICATION
     Dosage: 30 PACKS/ YEAR
     Route: 055
  5. OPIOIDS [Suspect]
     Active Substance: UNSPECIFIED INGREDIENT
     Indication: PRODUCT USED FOR UNKNOWN INDICATION
     Dosage: UNK
     Route: 065

REACTIONS (5)
  - Drug abuse [Not Recovered/Not Resolved]
  - Cerebrovascular accident [Recovered/Resolved]
  - Intentional product misuse [Not Recovered/Not Resolved]
  - Product use issue [Unknown]
  - Drug dependence [Not Recovered/Not Resolved]

NARRATIVE: CASE EVENT DATE: 20171205
